FAERS Safety Report 6139225-6 (Version None)
Quarter: 2009Q2

REPORT INFORMATION
  Report Type: 
  Country: None (occurrence: None)
  Receive Date: 20090401
  Receipt Date: 20090320
  Transmission Date: 20091009
  Serious: Yes (Other)
  Sender: FDA-Public Use
  Company Number: GR-PFIZER INC-2009187850

PATIENT

DRUGS (1)
  1. ZITHROMAX [Suspect]
     Indication: RESPIRATORY TRACT INFECTION
     Dosage: 2 G, 1X/DAY
     Route: 048
     Dates: start: 20090310, end: 20090310

REACTIONS (4)
  - AGEUSIA [None]
  - DIARRHOEA [None]
  - MOOD ALTERED [None]
  - VOMITING [None]
